FAERS Safety Report 23531653 (Version 1)
Quarter: 2024Q1

REPORT INFORMATION
  Report Type: Spontaneous
  Country: IN (occurrence: IN)
  Receive Date: 20240216
  Receipt Date: 20240216
  Transmission Date: 20240410
  Serious: Yes (Other)
  Sender: FDA-Public Use
  Company Number: IN-MLMSERVICE-20240122-4789168-1

PATIENT
  Age: 56 Year
  Sex: Female

DRUGS (3)
  1. CARBAMAZEPINE [Suspect]
     Active Substance: CARBAMAZEPINE
     Indication: Trigeminal neuralgia
     Route: 065
  2. CALCIUM CARBONATE [Concomitant]
     Active Substance: CALCIUM CARBONATE
     Indication: Trigeminal neuralgia
     Route: 065
     Dates: start: 2019
  3. CHOLECALCIFEROL [Concomitant]
     Active Substance: CHOLECALCIFEROL
     Indication: Prophylaxis
     Route: 065
     Dates: start: 2019

REACTIONS (4)
  - Loss of personal independence in daily activities [Unknown]
  - Frustration tolerance decreased [Unknown]
  - Vertigo [Unknown]
  - Anxiety [Unknown]
